FAERS Safety Report 18010356 (Version 1)
Quarter: 2020Q3

REPORT INFORMATION
  Report Type: Spontaneous
  Country: US (occurrence: US)
  Receive Date: 20200710
  Receipt Date: 20200710
  Transmission Date: 20201103
  Serious: Yes (Other)
  Sender: FDA-Public Use
  Company Number: US-PFIZER INC-2020170076

PATIENT
  Age: 41 Year
  Sex: Female

DRUGS (1)
  1. METHOTREXATE SODIUM. [Suspect]
     Active Substance: METHOTREXATE SODIUM
     Indication: SYSTEMIC LUPUS ERYTHEMATOSUS
     Dosage: UNK

REACTIONS (19)
  - Cough [Unknown]
  - Migraine [Unknown]
  - Retching [Unknown]
  - Depression [Unknown]
  - Feeling abnormal [Unknown]
  - Dyspnoea [Unknown]
  - Hyperhidrosis [Unknown]
  - Off label use [Unknown]
  - Product use in unapproved indication [Unknown]
  - Blood iron decreased [Unknown]
  - Lethargy [Unknown]
  - Drug effective for unapproved indication [Unknown]
  - Inflammation [Unknown]
  - White blood cell count decreased [Unknown]
  - Red blood cell count increased [Unknown]
  - Nausea [Unknown]
  - Peptic ulcer [Unknown]
  - Weight loss poor [Unknown]
  - Decreased appetite [Unknown]

NARRATIVE: CASE EVENT DATE: 2020
